FAERS Safety Report 4511865-7 (Version None)
Quarter: 2004Q4

REPORT INFORMATION
  Report Type: 
  Country: None (occurrence: None)
  Receive Date: 20041129
  Receipt Date: 20041116
  Transmission Date: 20050328
  Serious: Yes (Hospitalization)
  Sender: FDA-Public Use
  Company Number: ES-JNJFOC-20040700749

PATIENT
  Age: 34 Year
  Sex: Male

DRUGS (9)
  1. HALDOL [Suspect]
     Indication: PSYCHOMOTOR AGITATION
     Route: 042
  2. ALPRAZOLAM [Concomitant]
  3. PIPERACILLIN/TAZOBACTAM [Concomitant]
  4. PIPERACILLIN/TAZOBACTAM [Concomitant]
  5. PANTOPRAZOL [Concomitant]
  6. PARACETAMOL [Concomitant]
  7. VIT B1 [Concomitant]
  8. VIT B6 [Concomitant]
  9. VIT B12 [Concomitant]

REACTIONS (2)
  - TORSADE DE POINTES [None]
  - VENTRICULAR FIBRILLATION [None]
